FAERS Safety Report 6982852-4 (Version None)
Quarter: 2010Q3

REPORT INFORMATION
  Report Type: 
  Country: None (occurrence: None)
  Receive Date: 20100914
  Receipt Date: 20100329
  Transmission Date: 20110219
  Serious: Yes (Other)
  Sender: FDA-Public Use
  Company Number: US-PFIZER INC-2010041400

PATIENT
  Sex: Female
  Weight: 58.957 kg

DRUGS (1)
  1. LYRICA [Suspect]
     Indication: NERVE INJURY
     Dosage: 75 MG, 3X/DAY
     Route: 048
     Dates: start: 20050101, end: 20100327

REACTIONS (5)
  - ABDOMINAL DISCOMFORT [None]
  - HEADACHE [None]
  - MALAISE [None]
  - SLEEP DISORDER [None]
  - TREMOR [None]
